FAERS Safety Report 6171295-1 (Version None)
Quarter: 2009Q2

REPORT INFORMATION
  Report Type: 
  Country: None (occurrence: None)
  Receive Date: 20090427
  Receipt Date: 20090405
  Transmission Date: 20091009
  Serious: Yes (Death)
  Sender: FDA-Public Use
  Company Number: GB-DEXPHARM-20090425

PATIENT
  Age: 79 Year
  Sex: Male

DRUGS (5)
  1. OMEPRAZOLE [Suspect]
     Dosage: ORAL
     Route: 048
     Dates: end: 20081114
  2. ACETYLCYSTEINE [Suspect]
     Indication: PULMONARY ARTERIAL HYPERTENSION
     Dosage: 600 MG MILLIGRAM(S), ORAL 3 IN 1 DAY
     Route: 048
     Dates: start: 20081114, end: 20081226
  3. ALENDRONATE [Suspect]
     Dosage: 70 MG MILLIGRAM(S), ORAL 1 IN 1 WEEK
     Route: 048
     Dates: start: 20081114
  4. AZATHIOPRINE [Suspect]
     Indication: PULMONARY ARTERIAL HYPERTENSION
     Dosage: 125 MG MILLIGRAM(S), ORAL 1 IN 1 DAY
     Route: 048
     Dates: start: 20081114, end: 20081226
  5. WARFARIN [Concomitant]

REACTIONS (3)
  - NEUTROPENIA [None]
  - SEPSIS [None]
  - TOXIC EPIDERMAL NECROLYSIS [None]
